FAERS Safety Report 7209619 (Version 3)
Quarter: 2013Q1

REPORT INFORMATION
  Report Type: Spontaneous
  Country: US (occurrence: US)
  Receive Date: 20091210
  Receipt Date: 20130117
  Transmission Date: 20140127
  Serious: Yes (Hospitalization)
  Sender: FDA-Public Use
  Company Number: US-BIOGENIDEC-2009BI039327

PATIENT
  Age: 55 Year
  Sex: Female

DRUGS (2)
  1. TYSABRI [Suspect]
     Indication: MULTIPLE SCLEROSIS
     Route: 042
     Dates: start: 20070213, end: 200802
  2. TYSABRI [Suspect]
     Indication: MULTIPLE SCLEROSIS
     Route: 042
     Dates: start: 200806

REACTIONS (9)
  - Humerus fracture [Unknown]
  - Fall [Recovered/Resolved]
  - Upper limb fracture [Recovered/Resolved]
  - Multiple sclerosis relapse [Recovered/Resolved]
  - Asthma [Recovered/Resolved]
  - Visual acuity reduced [Not Recovered/Not Resolved]
  - Neurodegenerative disorder [Not Recovered/Not Resolved]
  - Depression [Recovered/Resolved]
  - Abasia [Not Recovered/Not Resolved]
